FAERS Safety Report 6585437-7 (Version None)
Quarter: 2010Q1

REPORT INFORMATION
  Report Type: 
  Country: None (occurrence: None)
  Receive Date: 20100217
  Receipt Date: 20100211
  Transmission Date: 20100710
  Serious: Yes (Hospitalization)
  Sender: FDA-Public Use
  Company Number: B0632830A

PATIENT
  Age: 32 Year
  Sex: Male

DRUGS (5)
  1. AUGMENTIN '125' [Suspect]
     Indication: SIGMOIDITIS
     Route: 048
     Dates: start: 20091125, end: 20091130
  2. FLAGYL [Suspect]
     Indication: SIGMOIDITIS
     Route: 048
     Dates: start: 20091125, end: 20091130
  3. METEOXANE [Suspect]
     Indication: SIGMOIDITIS
     Route: 065
     Dates: start: 20091125, end: 20091130
  4. STRESAM [Suspect]
     Dosage: 3UNIT PER DAY
     Route: 065
     Dates: start: 20091201, end: 20091207
  5. ERCEFURYL [Suspect]
     Dosage: 2UNIT TWICE PER DAY
     Route: 048
     Dates: start: 20091201, end: 20091207

REACTIONS (8)
  - ABNORMAL BEHAVIOUR [None]
  - AGGRESSION [None]
  - DIARRHOEA [None]
  - MEMORY IMPAIRMENT [None]
  - MENTAL DISORDER [None]
  - PARANOIA [None]
  - PERSECUTORY DELUSION [None]
  - SUICIDE ATTEMPT [None]
